FAERS Safety Report 5690953-6 (Version None)
Quarter: 2008Q2

REPORT INFORMATION
  Report Type: 
  Country: None (occurrence: None)
  Receive Date: 20080401
  Receipt Date: 20080324
  Transmission Date: 20081010
  Serious: Yes (Other)
  Sender: FDA-Public Use
  Company Number: FR-GENENTECH-255608

PATIENT
  Age: 70 Year
  Sex: Female

DRUGS (7)
  1. MABTHERA [Suspect]
     Indication: WALDENSTROM'S MACROGLOBULINAEMIA
     Dosage: UNK, X2
     Route: 042
     Dates: start: 20040901
  2. MABTHERA [Suspect]
     Dosage: 375 MG, 1/WEEK
     Route: 042
     Dates: start: 20060201
  3. MABTHERA [Suspect]
     Dosage: UNK, X4
     Dates: start: 20061201
  4. CHLORAMBUCIL [Concomitant]
     Indication: DRUG USE FOR UNKNOWN INDICATION
  5. FLUDARABINE [Concomitant]
     Indication: DRUG USE FOR UNKNOWN INDICATION
  6. CYCLOPHOSPHAMIDE [Concomitant]
     Indication: DRUG USE FOR UNKNOWN INDICATION
     Dates: start: 20040901
  7. CONCOMITANT UNSPECIFIED DRUG [Concomitant]
     Indication: DRUG USE FOR UNKNOWN INDICATION

REACTIONS (6)
  - APHASIA [None]
  - CEREBROVASCULAR ACCIDENT [None]
  - HEMIPLEGIA [None]
  - HYPOAESTHESIA [None]
  - PROGRESSIVE MULTIFOCAL LEUKOENCEPHALOPATHY [None]
  - STATUS EPILEPTICUS [None]
